FAERS Safety Report 12071992 (Version 2)
Quarter: 2016Q3

REPORT INFORMATION
  Report Type: Report from Study
  Country: BR (occurrence: BR)
  Receive Date: 20160212
  Receipt Date: 20160719
  Transmission Date: 20161109
  Serious: Yes (Death, Life-Threatening, Hospitalization, Other)
  Sender: FDA-Public Use
  Company Number: BR-BRISTOL-MYERS SQUIBB COMPANY-BMS-2016-007269

PATIENT
  Sex: Female

DRUGS (2)
  1. LORATAMED [Concomitant]
     Active Substance: LORATADINE
     Indication: PRODUCT USED FOR UNKNOWN INDICATION
     Route: 065
  2. ABATACEPT [Suspect]
     Active Substance: ABATACEPT
     Indication: RHEUMATOID ARTHRITIS
     Dosage: 250 MG, QMO
     Route: 065

REACTIONS (5)
  - Cholangitis [Fatal]
  - Bile duct stone [Fatal]
  - Cholecystitis [Unknown]
  - Endotracheal intubation [Unknown]
  - Cholecystectomy [Unknown]
